FAERS Safety Report 24241707 (Version 1)
Quarter: 2024Q3

REPORT INFORMATION
  Report Type: Spontaneous
  Country: CH (occurrence: CH)
  Receive Date: 20240823
  Receipt Date: 20240823
  Transmission Date: 20241016
  Serious: Yes (Other)
  Sender: SANDOZ
  Company Number: None

PATIENT
  Age: 73 Year
  Sex: Male
  Weight: 90 kg

DRUGS (29)
  1. AMLODIPINE [Suspect]
     Active Substance: AMLODIPINE BESYLATE
     Indication: Product used for unknown indication
     Dosage: 5 MG N/A DOSE EVERY N/A AS NECESSARY
     Route: 048
  2. ALDACTONE [Suspect]
     Active Substance: SPIRONOLACTONE
     Indication: Product used for unknown indication
     Dosage: 25 MG N/A DOSE EVERY 1 DAY
     Route: 050
  3. AMOXICILLIN AND CLAVULANATE POTASSIUM [Suspect]
     Active Substance: AMOXICILLIN\CLAVULANATE POTASSIUM
     Indication: Pneumonia
     Dosage: UNK
     Route: 065
     Dates: start: 20240524, end: 20240530
  4. CEFEPIME [Suspect]
     Active Substance: CEFEPIME HYDROCHLORIDE
     Indication: Pneumonia aspiration
     Dosage: UNK
     Route: 065
     Dates: start: 20240617, end: 20240621
  5. MEROPENEM [Suspect]
     Active Substance: MEROPENEM
     Indication: Pneumonia aspiration
     Dosage: UNK
     Route: 065
     Dates: start: 20240616, end: 20240617
  6. METOPROLOL [Suspect]
     Active Substance: METOPROLOL
     Indication: Product used for unknown indication
     Dosage: 100 MG N/A DOSE EVERY 12 HOUR
     Route: 050
  7. PANTOPRAZOLE [Suspect]
     Active Substance: PANTOPRAZOLE
     Indication: Product used for unknown indication
     Dosage: 40 MG N/A DOSE EVERY 1 DAY
     Route: 048
  8. PIPERACILLIN AND TAZOBACTAM [Suspect]
     Active Substance: PIPERACILLIN SODIUM\TAZOBACTAM SODIUM
     Indication: Pneumonia aspiration
     Dosage: UNK
     Route: 065
     Dates: start: 20240614, end: 20240616
  9. PLAVIX [Suspect]
     Active Substance: CLOPIDOGREL BISULFATE
     Indication: Product used for unknown indication
     Dosage: 75 MG N/A DOSE EVERY 1 DAY
     Route: 050
  10. ASPIRIN DL-LYSINE [Concomitant]
     Active Substance: ASPIRIN DL-LYSINE
     Indication: Product used for unknown indication
     Dosage: UNK
     Route: 065
     Dates: start: 20240524
  11. ATROVENT [Concomitant]
     Active Substance: IPRATROPIUM BROMIDE
     Indication: Product used for unknown indication
     Dosage: 0.25 MG IPRATROPIUMBROMIDE PER 2 ML (1 {DF})
     Route: 055
  12. CANGRELOR [Concomitant]
     Active Substance: CANGRELOR
     Indication: Product used for unknown indication
     Dosage: UNK
     Route: 065
     Dates: start: 20240524
  13. MELATONIN [Concomitant]
     Active Substance: MELATONIN
     Indication: Product used for unknown indication
     Dosage: RETARD
     Route: 065
  14. ENOXAPARIN SODIUM [Concomitant]
     Active Substance: ENOXAPARIN SODIUM
     Indication: Product used for unknown indication
     Dosage: 100 MG N/A DOSE EVERY 1 DAY
     Route: 058
  15. ENOXAPARIN SODIUM [Concomitant]
     Active Substance: ENOXAPARIN SODIUM
     Dosage: 80 MG N/A DOSE EVERY 1 DAY
     Route: 058
  16. Dulcolax [Concomitant]
     Indication: Product used for unknown indication
     Dosage: 5 MG N/A DOSE EVERY N/A AS NECESSARY
     Route: 054
  17. ENTRESTO [Concomitant]
     Active Substance: SACUBITRIL\VALSARTAN
     Indication: Product used for unknown indication
     Dosage: 1 DF
     Route: 048
  18. DAPAGLIFLOZIN [Concomitant]
     Active Substance: DAPAGLIFLOZIN
     Indication: Product used for unknown indication
     Dosage: 10 MG N/A DOSE EVERY 1 DAY
     Route: 065
  19. HEPARIN [Concomitant]
     Active Substance: HEPARIN SODIUM
     Indication: Product used for unknown indication
     Dosage: UNK
     Route: 065
     Dates: start: 20240524
  20. IMAZOLE [Concomitant]
     Indication: Product used for unknown indication
     Dosage: 1 DF
     Route: 003
  21. Isosource protein [Concomitant]
     Indication: Product used for unknown indication
     Dosage: 130 KCAL/ 100 ML; 2300KCAL/ DAY
     Route: 050
  22. JOULIE SOL [Concomitant]
     Indication: Product used for unknown indication
     Dosage: 5 ML N/A DOSE EVERY 8 HOUR
     Route: 050
  23. POTASSIUM CHLORIDE [Concomitant]
     Active Substance: POTASSIUM CHLORIDE
     Indication: Product used for unknown indication
     Dosage: 1 MMOL KCL/ ML
     Route: 050
  24. SODIUM PICOSULFATE [Concomitant]
     Active Substance: SODIUM PICOSULFATE
     Indication: Product used for unknown indication
     Dosage: 7.5 MG SODIUM PICOSULFATE PER ML
     Route: 050
  25. Minalgine [Concomitant]
     Indication: Product used for unknown indication
     Dosage: 500 MG METAMIZOL PER ML
     Route: 040
     Dates: end: 20240623
  26. Minalgine [Concomitant]
     Dosage: 500 MG METAMIZOL PER ML
     Route: 050
  27. BISACODYL [Concomitant]
     Active Substance: BISACODYL
     Indication: Product used for unknown indication
     Dosage: 5 MG N/A DOSE EVERY N/A AS NECESSARY
     Route: 054
  28. ROSUVASTATIN [Concomitant]
     Active Substance: ROSUVASTATIN\ROSUVASTATIN CALCIUM
     Indication: Product used for unknown indication
     Dosage: 20 MG N/A DOSE EVERY 1 DAY
     Route: 050
  29. Salbutamol ratiopharm [Concomitant]
     Indication: Product used for unknown indication
     Dosage: 1.25 MG SALBUTAMOL PER 2.5 ML
     Route: 055

REACTIONS (1)
  - Delirium [Recovering/Resolving]

NARRATIVE: CASE EVENT DATE: 20240601
